FAERS Safety Report 11515681 (Version 3)
Quarter: 2015Q4

REPORT INFORMATION
  Report Type: Report from Study
  Country: TW (occurrence: TW)
  Receive Date: 20150916
  Receipt Date: 20151110
  Transmission Date: 20160304
  Serious: Yes (Hospitalization)
  Sender: FDA-Public Use
  Company Number: TW-INCYTE CORPORATION-2015IN004528

PATIENT
  Age: 72 Year
  Sex: Female
  Weight: 49 kg

DRUGS (14)
  1. JAKAFI [Suspect]
     Active Substance: RUXOLITINIB
     Dosage: 20 MG, BID
     Route: 048
     Dates: start: 20150414, end: 20150829
  2. JAKAFI [Suspect]
     Active Substance: RUXOLITINIB
     Dosage: 10 MG, QD
     Route: 048
     Dates: start: 20150921, end: 20150928
  3. HYDROCORTISONE. [Concomitant]
     Active Substance: HYDROCORTISONE
     Indication: TRANSFUSION
     Dosage: 100 MG
     Route: 065
     Dates: start: 20150902
  4. JAKAFI [Suspect]
     Active Substance: RUXOLITINIB
     Dosage: 15 MG, QD
     Route: 048
     Dates: start: 20150929
  5. BROWN MIXTURE [Concomitant]
     Indication: COUGH
     Dosage: 80 MG, UNK
     Route: 065
     Dates: start: 20150925
  6. AMLODIPINE [Concomitant]
     Active Substance: AMLODIPINE BESYLATE
     Indication: HYPERTENSION
     Dosage: 5 MG, UNK
     Route: 065
     Dates: start: 20150929
  7. JAKAFI [Suspect]
     Active Substance: RUXOLITINIB
     Indication: MYELOFIBROSIS
     Dosage: UNK
     Route: 065
     Dates: start: 20111101
  8. CODEINE PHOSPHATE [Concomitant]
     Active Substance: CODEINE PHOSPHATE
     Indication: ANTITUSSIVE THERAPY
     Dosage: 60 MG, UNK
     Route: 065
     Dates: start: 20150925, end: 20150929
  9. EXJADE [Concomitant]
     Active Substance: DEFERASIROX
     Indication: HAEMOCHROMATOSIS
     Dosage: UNK
     Route: 065
     Dates: start: 20130719
  10. SPIRONOLACTONE. [Concomitant]
     Active Substance: SPIRONOLACTONE
     Indication: HYPOKALAEMIA
     Dosage: 200 MG, UNK
     Route: 065
     Dates: start: 20150929
  11. JAKAFI [Suspect]
     Active Substance: RUXOLITINIB
     Dosage: 10 MG, QD
     Route: 048
     Dates: start: 20150830, end: 20150902
  12. DIPHENHYDRAMINE HCL [Concomitant]
     Active Substance: DIPHENHYDRAMINE HYDROCHLORIDE
     Indication: TRANSFUSION
     Dosage: 30 MG
     Route: 065
     Dates: start: 20150902
  13. LOSARTAN. [Concomitant]
     Active Substance: LOSARTAN
     Indication: HYPERTENSION
     Route: 065
  14. LOPERAMIDE [Concomitant]
     Active Substance: LOPERAMIDE
     Indication: DIARRHOEA
     Dosage: 8 MG, UNK
     Route: 065
     Dates: start: 20150929

REACTIONS (8)
  - Encephalitis fungal [Recovering/Resolving]
  - Vomiting [Unknown]
  - Pleural effusion [Recovering/Resolving]
  - Normochromic normocytic anaemia [Unknown]
  - Thrombocytopenia [Unknown]
  - Hypophagia [Unknown]
  - Dyspnoea [Unknown]
  - Splenomegaly [Unknown]

NARRATIVE: CASE EVENT DATE: 20150830
